FAERS Safety Report 24393537 (Version 1)
Quarter: 2024Q4

REPORT INFORMATION
  Report Type: Spontaneous
  Country: US (occurrence: None)
  Receive Date: 20241003
  Receipt Date: 20241003
  Transmission Date: 20250114
  Serious: No
  Sender: Public
  Company Number: None

PATIENT
  Sex: Male

DRUGS (1)
  1. TEMOZOLOMIDE [Suspect]
     Active Substance: TEMOZOLOMIDE
     Indication: Brain neoplasm malignant
     Dosage: FREQUENCY : AS DIRECTED;? TAKE 3 CAPSULES BY MOUTH 1 TIME A DAY FOR 5 DAYS OF 28 DAY CYCLE. TOTAL DA
     Route: 048
     Dates: start: 202404

REACTIONS (1)
  - Seizure [None]
